FAERS Safety Report 6486261-6 (Version None)
Quarter: 2009Q4

REPORT INFORMATION
  Report Type: 
  Country: None (occurrence: None)
  Receive Date: 20091209
  Receipt Date: 20090724
  Transmission Date: 20100525
  Serious: No
  Sender: FDA-Public Use
  Company Number: US-AMGEN-KDL357432

PATIENT
  Sex: Male

DRUGS (2)
  1. ENBREL [Suspect]
     Indication: RHEUMATOID ARTHRITIS
     Route: 058
     Dates: start: 20090703
  2. METHOTREXATE [Concomitant]
     Route: 048

REACTIONS (2)
  - ABDOMINAL DISCOMFORT [None]
  - ABDOMINAL DISTENSION [None]
